FAERS Safety Report 6222908-7 (Version None)
Quarter: 2009Q2

REPORT INFORMATION
  Report Type: 
  Country: None (occurrence: None)
  Receive Date: 20090611
  Receipt Date: 20090608
  Transmission Date: 20091009
  Serious: Yes (Other)
  Sender: FDA-Public Use
  Company Number: DE-BRISTOL-MYERS SQUIBB COMPANY-14612691

PATIENT
  Age: 60 Year
  Sex: Female

DRUGS (11)
  1. HYDROXYUREA [Suspect]
     Indication: POLYCYTHAEMIA VERA
     Route: 048
     Dates: start: 20080701, end: 20090401
  2. LYRICA [Concomitant]
     Dosage: FREQUENCY: 1X1 (UNITS NOT PROVIDED)
     Route: 048
  3. METOPROLOL SUCCINATE [Concomitant]
     Dosage: FREQUENCY: 2X 1/2 (UNITS NOT PROVIDED)
     Route: 048
  4. PANTOZOL [Concomitant]
     Route: 048
  5. ATACAND [Concomitant]
     Route: 048
  6. ASPIRIN [Concomitant]
     Route: 048
  7. LEVOTHYROXINE SODIUM [Concomitant]
  8. ALLOPURINOL [Concomitant]
     Route: 048
  9. FENISTIL [Concomitant]
  10. TRAMADOL HYDROCHLORIDE AND ACETAMINOPHEN [Concomitant]
     Dosage: 1 DF = 37.5/325 MG
     Route: 048
  11. LAFAMME [Concomitant]
     Route: 048

REACTIONS (6)
  - ABDOMINAL PAIN [None]
  - DEPRESSED MOOD [None]
  - DIARRHOEA [None]
  - FATIGUE [None]
  - NAUSEA [None]
  - WEIGHT DECREASED [None]
